FAERS Safety Report 11642772 (Version 4)
Quarter: 2016Q1

REPORT INFORMATION
  Report Type: Spontaneous
  Country: None (occurrence: US)
  Receive Date: 20151020
  Receipt Date: 20160106
  Transmission Date: 20160525
  Serious: Yes (Hospitalization, Other)
  Sender: FDA-Public Use
  Company Number: US-BTG INTERNATIONAL LTD-BTG00399

PATIENT

DRUGS (2)
  1. ANAVIP [Suspect]
     Active Substance: PIT VIPER (CROTALINAE) IMMUNE GLOBULIN ANTIVENIN (EQUINE)
     Indication: VENOMOUS BITE
     Dosage: 10 VIALS
     Dates: start: 2015
  2. CROFAB [Suspect]
     Active Substance: CROTALIDAE POLYVALENT IMMUNE FAB (OVINE)
     Indication: VENOMOUS BITE
     Dosage: 22 VIALS
     Dates: start: 201509

REACTIONS (3)
  - Serum sickness [Recovered/Resolved]
  - Drug ineffective [None]
  - Coagulopathy [Recovered/Resolved]

NARRATIVE: CASE EVENT DATE: 2015
